FAERS Safety Report 10464391 (Version 1)
Quarter: 2014Q3

REPORT INFORMATION
  Report Type: Spontaneous
  Country: US (occurrence: US)
  Receive Date: 20140919
  Receipt Date: 20140919
  Transmission Date: 20150326
  Serious: Yes (Other)
  Sender: FDA-Public Use
  Company Number: US-BAYER-2014-137984

PATIENT
  Age: 68 Year
  Sex: Female
  Weight: 57.6 kg

DRUGS (13)
  1. STIVARGA [Suspect]
     Active Substance: REGORAFENIB
     Indication: COLORECTAL CANCER
     Dosage: 160 MG, QD
     Route: 048
     Dates: start: 20140907, end: 20140909
  2. KCL [Concomitant]
     Active Substance: POTASSIUM CHLORIDE
  3. STIVARGA [Suspect]
     Active Substance: REGORAFENIB
     Indication: METASTASES TO LUNG
     Dosage: UNK
     Route: 048
  4. PROCHLORPERAZINE. [Concomitant]
     Active Substance: PROCHLORPERAZINE
     Dosage: UNK UNK, PRN
  5. BIOTIN [Concomitant]
     Active Substance: BIOTIN
  6. AMLODIPINE [Concomitant]
     Active Substance: AMLODIPINE BESYLATE
  7. CENTRUM A TO ZINC [Concomitant]
  8. STIVARGA [Suspect]
     Active Substance: REGORAFENIB
     Indication: METASTASES TO LIVER
  9. ALEVE [Concomitant]
     Active Substance: NAPROXEN SODIUM
     Dosage: UNK UNK, PRN
  10. IMODIUM AKUT [Concomitant]
     Active Substance: LOPERAMIDE
     Dosage: UNK UNK, PRN
  11. TUMS [CALCIUM CARBONATE] [Concomitant]
     Dosage: UNK UNK, PRN
  12. ATENOLOL. [Concomitant]
     Active Substance: ATENOLOL
  13. PHENYLEPHRIN [Concomitant]
     Dosage: UNK UNK, PRN

REACTIONS (7)
  - Asthenia [None]
  - Dysphonia [None]
  - Weight decreased [None]
  - Fatigue [None]
  - Pain [None]
  - Decreased appetite [None]
  - Jaundice [None]

NARRATIVE: CASE EVENT DATE: 20140910
